FAERS Safety Report 7133070-0 (Version None)
Quarter: 2010Q4

REPORT INFORMATION
  Report Type: 
  Country: None (occurrence: None)
  Receive Date: 20101202
  Receipt Date: 20101122
  Transmission Date: 20110411
  Serious: Yes (Other)
  Sender: FDA-Public Use
  Company Number: B0681228A

PATIENT
  Sex: Male
  Weight: 58 kg

DRUGS (6)
  1. KIVEXA [Suspect]
     Indication: HIV INFECTION
     Dosage: 1TAB PER DAY
     Route: 048
     Dates: start: 20100828, end: 20100917
  2. VIRAMUNE [Concomitant]
     Indication: HIV INFECTION
     Dosage: 200MG TWICE PER DAY
     Route: 048
     Dates: start: 19981115, end: 20100917
  3. KARDEGIC [Concomitant]
     Indication: CEREBROVASCULAR ACCIDENT
     Route: 048
     Dates: start: 20100301
  4. CRESTOR [Concomitant]
     Indication: CEREBROVASCULAR ACCIDENT
     Route: 048
     Dates: start: 20100301
  5. NOCTAMIDE [Concomitant]
     Indication: INSOMNIA
     Dosage: 2MG PER DAY
     Route: 048
     Dates: start: 20071128
  6. ALPRAZOLAM [Concomitant]
     Indication: ANXIETY
     Route: 048
     Dates: start: 20051027

REACTIONS (9)
  - CONDITION AGGRAVATED [None]
  - DIARRHOEA [None]
  - DRUG HYPERSENSITIVITY [None]
  - FAECES DISCOLOURED [None]
  - INSOMNIA [None]
  - MALAISE [None]
  - NAUSEA [None]
  - RASH [None]
  - VOMITING [None]
